FAERS Safety Report 21857409 (Version 1)
Quarter: 2023Q1

REPORT INFORMATION
  Report Type: Report from Study
  Country: US (occurrence: US)
  Receive Date: 20230113
  Receipt Date: 20230113
  Transmission Date: 20230417
  Serious: Yes (Hospitalization)
  Sender: FDA-Public Use
  Company Number: US-SUN PHARMACEUTICAL INDUSTRIES LTD-2022R1-371912

PATIENT
  Age: 58 Year
  Sex: Female

DRUGS (2)
  1. TEMOZOLOMIDE [Suspect]
     Active Substance: TEMOZOLOMIDE
     Indication: Salivary gland cancer
     Dosage: UNK
     Route: 065
     Dates: start: 20220809
  2. TALAZOPARIB [Suspect]
     Active Substance: TALAZOPARIB
     Indication: Salivary gland cancer
     Dosage: UNK
     Route: 065
     Dates: start: 20220809

REACTIONS (1)
  - Epistaxis [Recovering/Resolving]

NARRATIVE: CASE EVENT DATE: 20221125
